FAERS Safety Report 8025035 (Version 5)
Quarter: 2012Q4

REPORT INFORMATION
  Report Type: Report from Study
  Country: JP (occurrence: JP)
  Receive Date: 20110707
  Receipt Date: 20120914
  Transmission Date: 20130627
  Serious: Yes (Death, Life-Threatening, Hospitalization, Other)
  Sender: FDA-Public Use
  Company Number: JP-CELGENEUS-087-21880-11030477

PATIENT
  Age: 68 Year
  Sex: Female

DRUGS (23)
  1. REVLIMID [Suspect]
     Indication: MULTIPLE MYELOMA
     Dosage: 10 Milligram
     Route: 048
     Dates: start: 20100928, end: 20101020
  2. REVLIMID [Suspect]
     Dosage: 15 Milligram
     Route: 048
     Dates: start: 20101104, end: 20101123
  3. REVLIMID [Suspect]
     Dosage: 15 Milligram
     Route: 048
     Dates: start: 20101201, end: 20101221
  4. REVLIMID [Suspect]
     Dosage: 15 Milligram
     Route: 048
     Dates: start: 20110105, end: 20110118
  5. LENADEX [Suspect]
     Indication: MULTIPLE MYELOMA
     Dosage: 40 Milligram
     Route: 048
     Dates: start: 20110112, end: 20110112
  6. DECADRON [Concomitant]
     Indication: MULTIPLE MYELOMA
     Dosage: 33 Milligram
     Route: 041
     Dates: start: 20100928, end: 20101013
  7. DECADRON [Concomitant]
     Dosage: 33 Milligram
     Route: 041
     Dates: start: 20101104, end: 20101124
  8. DECADRON [Concomitant]
     Dosage: 33 Milligram
     Route: 041
     Dates: start: 20101201, end: 20101222
  9. DECADRON [Concomitant]
     Dosage: 33 Milligram
     Route: 041
     Dates: start: 20110105, end: 20110105
  10. DECADRON [Concomitant]
     Dosage: 33 Milligram
     Route: 041
     Dates: start: 20110119, end: 20110119
  11. BAYASPIRIN [Concomitant]
     Indication: MULTIPLE MYELOMA
     Dosage: 100 Milligram
     Route: 048
     Dates: start: 20091223
  12. ZOMETA [Concomitant]
     Indication: MULTIPLE MYELOMA
     Dosage: 3.3 Milligram
     Route: 041
     Dates: start: 20101006, end: 20101006
  13. ZOMETA [Concomitant]
     Dosage: 3.3 Milligram
     Route: 041
     Dates: start: 20101104, end: 20101104
  14. ZOMETA [Concomitant]
     Dosage: 3.3 Milligram
     Route: 041
     Dates: start: 20101201, end: 20101201
  15. PREDONINE [Concomitant]
     Indication: MULTIPLE MYELOMA
     Dosage: 5 Milligram
     Route: 048
     Dates: start: 20100927, end: 20101004
  16. PREDONINE [Concomitant]
     Indication: PROPHYLAXIS
     Dosage: 5 Milligram
     Route: 048
     Dates: start: 20110105, end: 20110118
  17. PREDONINE [Concomitant]
     Dosage: 5 Milligram
     Route: 041
     Dates: start: 20110121, end: 20110123
  18. DEPAS [Concomitant]
     Indication: MULTIPLE MYELOMA
     Dosage: .5 Milligram
     Route: 048
     Dates: start: 20101222
  19. DEPAS [Concomitant]
     Indication: PROPHYLAXIS
     Dosage: .5 Milligram
     Route: 048
     Dates: start: 20110105, end: 20110118
  20. GASTER [Concomitant]
     Indication: PROPHYLAXIS
     Dosage: 20 Milligram
     Route: 041
     Dates: start: 20110121, end: 20110121
  21. OMEPRAL [Concomitant]
     Indication: PROPHYLAXIS
     Dosage: 20 Milligram
     Route: 041
     Dates: start: 20110122, end: 20110123
  22. RISPERDAL [Concomitant]
     Indication: PROPHYLAXIS
     Route: 048
     Dates: start: 20110121
  23. VENETLIN [Concomitant]
     Indication: PROPHYLAXIS
     Route: 055
     Dates: start: 20110123, end: 20110123

REACTIONS (18)
  - Multi-organ failure [Fatal]
  - Pneumonia [Not Recovered/Not Resolved]
  - Depressed level of consciousness [Not Recovered/Not Resolved]
  - Hypoxia [Not Recovered/Not Resolved]
  - Cardiac failure [Not Recovered/Not Resolved]
  - Anaemia [Not Recovered/Not Resolved]
  - Neutrophil count decreased [Not Recovered/Not Resolved]
  - White blood cell count decreased [Recovered/Resolved]
  - Restlessness [Not Recovered/Not Resolved]
  - Pain [Not Recovered/Not Resolved]
  - Bronchitis [Recovering/Resolving]
  - Hepatic function abnormal [Not Recovered/Not Resolved]
  - Decreased appetite [Recovering/Resolving]
  - Platelet count decreased [Not Recovered/Not Resolved]
  - Lymphocyte count decreased [Recovered/Resolved]
  - Upper respiratory tract infection [Recovered/Resolved]
  - Constipation [Not Recovered/Not Resolved]
  - Lip dry [Unknown]
